FAERS Safety Report 7472476-7 (Version None)
Quarter: 2011Q1

REPORT INFORMATION
  Report Type: 
  Country: None (occurrence: None)
  Receive Date: 20110302
  Receipt Date: 20100831
  Transmission Date: 20110831
  Serious: Yes (Death, Hospitalization)
  Sender: FDA-Public Use
  Company Number: 163-21880-10060884

PATIENT
  Age: 88 Year
  Sex: Male

DRUGS (6)
  1. PROSCAR [Concomitant]
  2. DIGOXIN [Concomitant]
  3. METOPROLOL TARTRATE [Concomitant]
  4. REVLIMID [Suspect]
     Indication: MYELODYSPLASTIC SYNDROME
     Dosage: 5 MG, QOD, PO
     Route: 048
     Dates: start: 20091201, end: 20100601
  5. FUROSEMIDE [Concomitant]
  6. PREDNISONE [Concomitant]

REACTIONS (1)
  - SMALL INTESTINAL OBSTRUCTION [None]
